FAERS Safety Report 13346625 (Version 2)
Quarter: 2017Q2

REPORT INFORMATION
  Report Type: Spontaneous
  Country: US (occurrence: US)
  Receive Date: 20170317
  Receipt Date: 20170409
  Transmission Date: 20170830
  Serious: Yes (Other)
  Sender: FDA-Public Use
  Company Number: US-009507513-1703USA006433

PATIENT

DRUGS (1)
  1. ZERBAXA [Suspect]
     Active Substance: CEFTOLOZANE SULFATE\TAZOBACTAM SODIUM
     Indication: PNEUMONIA

REACTIONS (2)
  - Pathogen resistance [Not Recovered/Not Resolved]
  - Drug effect decreased [Not Recovered/Not Resolved]
